FAERS Safety Report 9165128 (Version 1)
Quarter: 2013Q1

REPORT INFORMATION
  Report Type: Spontaneous
  Country: US (occurrence: None)
  Receive Date: 20130313
  Receipt Date: 20130313
  Transmission Date: 20140127
  Serious: Yes (Hospitalization)
  Sender: FDA-Public Use
  Company Number: None

PATIENT
  Sex: Male
  Weight: 114.3 kg

DRUGS (2)
  1. CARBOPLATIN [Suspect]
     Dates: end: 20130228
  2. PACLITAXEL (TAXOL) [Suspect]
     Dates: end: 20130228

REACTIONS (21)
  - Abdominal pain [None]
  - Nausea [None]
  - Pyrexia [None]
  - Chills [None]
  - Constipation [None]
  - Vomiting [None]
  - Suicidal ideation [None]
  - Depression [None]
  - Anxiety [None]
  - Leukopenia [None]
  - Neutropenia [None]
  - Thrombocytopenia [None]
  - Renal failure acute [None]
  - Pulmonary embolism [None]
  - Pneumonia [None]
  - Acute respiratory distress syndrome [None]
  - Tachycardia [None]
  - Klebsiella infection [None]
  - Candida infection [None]
  - Liver abscess [None]
  - Dyspnoea [None]
